FAERS Safety Report 14099754 (Version 1)
Quarter: 2017Q4

REPORT INFORMATION
  Report Type: Spontaneous
  Country: FR (occurrence: FR)
  Receive Date: 20171017
  Receipt Date: 20171017
  Transmission Date: 20180321
  Serious: Yes (Other)
  Sender: FDA-Public Use
  Company Number: FR-MERCK KGAA-2030360

PATIENT
  Age: 70 Year
  Sex: Female

DRUGS (1)
  1. NOVOTHYROX [Suspect]
     Active Substance: LEVOTHYROXINE SODIUM
     Indication: POST PROCEDURAL HYPOTHYROIDISM
     Route: 048
     Dates: start: 20170501, end: 20170920

REACTIONS (14)
  - Diffuse alopecia [Not Recovered/Not Resolved]
  - Raynaud^s phenomenon [Not Recovered/Not Resolved]
  - Vision blurred [Not Recovered/Not Resolved]
  - Palpitations [Not Recovered/Not Resolved]
  - Peripheral coldness [Not Recovered/Not Resolved]
  - Hypotension [Not Recovered/Not Resolved]
  - Dizziness [Not Recovered/Not Resolved]
  - Joint swelling [Not Recovered/Not Resolved]
  - Eyelid oedema [Not Recovered/Not Resolved]
  - Photophobia [Not Recovered/Not Resolved]
  - Eczema [Not Recovered/Not Resolved]
  - Headache [Not Recovered/Not Resolved]
  - Sjogren^s syndrome [Not Recovered/Not Resolved]
  - Pruritus generalised [Not Recovered/Not Resolved]

NARRATIVE: CASE EVENT DATE: 20170615
